FAERS Safety Report 23476904 (Version 1)
Quarter: 2024Q1

REPORT INFORMATION
  Report Type: Report from Study
  Country: US (occurrence: US)
  Receive Date: 20240204
  Receipt Date: 20240204
  Transmission Date: 20240410
  Serious: No
  Sender: FDA-Public Use
  Company Number: US-EXELIXIS-CABO-23064526

PATIENT
  Age: 63 Year
  Sex: Male

DRUGS (2)
  1. CABOMETYX [Suspect]
     Active Substance: CABOZANTINIB S-MALATE
     Indication: Renal cancer
     Dosage: 40 MG, QD
     Route: 048
     Dates: end: 20230619
  2. CABOMETYX [Suspect]
     Active Substance: CABOZANTINIB S-MALATE
     Dosage: 40 MG, QD
     Route: 048
     Dates: start: 202306

REACTIONS (12)
  - Chills [Unknown]
  - Limb discomfort [Recovered/Resolved]
  - Feeling hot [Recovered/Resolved]
  - Gastrooesophageal reflux disease [Recovered/Resolved]
  - Flatulence [Recovering/Resolving]
  - Dry mouth [Unknown]
  - Nausea [Recovered/Resolved]
  - Fatigue [Recovering/Resolving]
  - Constipation [Recovered/Resolved]
  - Decreased appetite [Not Recovered/Not Resolved]
  - Weight decreased [Not Recovered/Not Resolved]
  - Headache [Recovered/Resolved]

NARRATIVE: CASE EVENT DATE: 20230727
